FAERS Safety Report 12242341 (Version 2)
Quarter: 2016Q2

REPORT INFORMATION
  Report Type: Spontaneous
  Country: US (occurrence: US)
  Receive Date: 20160406
  Receipt Date: 20160420
  Transmission Date: 20160815
  Serious: Yes (Death)
  Sender: FDA-Public Use
  Company Number: US-JNJFOC-20160404407

PATIENT
  Sex: Male
  Weight: 104 kg

DRUGS (6)
  1. LIPITOR [Concomitant]
     Active Substance: ATORVASTATIN CALCIUM
  2. VITAMINS NOS [Concomitant]
     Active Substance: VITAMINS
  3. LOSARTAN. [Concomitant]
     Active Substance: LOSARTAN
  4. ASPIRIN. [Concomitant]
     Active Substance: ASPIRIN
  5. HCTZ [Concomitant]
     Active Substance: HYDROCHLOROTHIAZIDE
  6. IMBRUVICA [Suspect]
     Active Substance: IBRUTINIB
     Indication: CHRONIC LYMPHOCYTIC LEUKAEMIA
     Route: 048
     Dates: start: 20160322

REACTIONS (1)
  - Death [Fatal]
